FAERS Safety Report 5019422-3 (Version None)
Quarter: 2006Q2

REPORT INFORMATION
  Report Type: 
  Country: None (occurrence: None)
  Receive Date: 20060531
  Receipt Date: 20060512
  Transmission Date: 20061013
  Serious: Yes (Hospitalization)
  Sender: FDA-Public Use
  Company Number: ENT 2006-0014

PATIENT
  Age: 80 Year
  Sex: Male

DRUGS (1)
  1. COMTESS (ENTACAPONE) [Suspect]
     Indication: PARKINSON'S DISEASE
     Dosage: 800 MG
     Route: 048
     Dates: start: 20051013, end: 20051110

REACTIONS (14)
  - ANGIOPATHY [None]
  - ASCITES [None]
  - BLOOD CREATINE INCREASED [None]
  - CONTUSION [None]
  - DISEASE PROGRESSION [None]
  - FLATULENCE [None]
  - GENERAL PHYSICAL HEALTH DETERIORATION [None]
  - GENERALISED OEDEMA [None]
  - ORTHOPNOEA [None]
  - PARKINSON'S DISEASE [None]
  - RENAL IMPAIRMENT [None]
  - RESPIRATORY DISORDER [None]
  - TRICUSPID VALVE INCOMPETENCE [None]
  - WEIGHT DECREASED [None]
